FAERS Safety Report 13466574 (Version 1)
Quarter: 2017Q2

REPORT INFORMATION
  Report Type: Report from Study
  Country: CA (occurrence: CA)
  Receive Date: 20170421
  Receipt Date: 20170421
  Transmission Date: 20170830
  Serious: Yes (Hospitalization)
  Sender: FDA-Public Use
  Company Number: CA-ASTRAZENECA-2017SE40375

PATIENT
  Age: 57 Year
  Sex: Female

DRUGS (20)
  1. STATEX [Concomitant]
     Active Substance: MORPHINE SULFATE
     Dates: start: 2006
  2. DOCUSATE SODIUM/SENNA ALEXANDRINA [Concomitant]
     Dates: start: 2006
  3. ZOLOFT [Concomitant]
     Active Substance: SERTRALINE HYDROCHLORIDE
     Dates: start: 2011
  4. QUETIAPINE. [Concomitant]
     Active Substance: QUETIAPINE
     Dates: start: 2011
  5. VITAMIN E [Concomitant]
     Active Substance: .ALPHA.-TOCOPHEROL
     Dates: start: 1997
  6. LASIX [Concomitant]
     Active Substance: FUROSEMIDE
     Dates: start: 2006
  7. ZOLEDRONIC ACID [Concomitant]
     Active Substance: ZOLEDRONIC ACID
     Dates: start: 20160607
  8. GABAPENTIN. [Concomitant]
     Active Substance: GABAPENTIN
     Dates: start: 2010
  9. LACTULOSE. [Concomitant]
     Active Substance: LACTULOSE
     Dates: start: 20161011
  10. FULVESTRANT [Suspect]
     Active Substance: FULVESTRANT
     Indication: BREAST CANCER
     Dosage: 500 MG, CYCLIC (28 DAY CYCLE)500.0MG EVERY CYCLE
     Route: 030
     Dates: start: 20160912
  11. MORPHINE SULFATE. [Concomitant]
     Active Substance: MORPHINE SULFATE
     Dates: start: 2006
  12. ASCORBIC ACID. [Concomitant]
     Active Substance: ASCORBIC ACID
     Dates: start: 1997
  13. VOLTAREN [Concomitant]
     Active Substance: DICLOFENAC SODIUM
     Dates: start: 1996
  14. CALCIUM/MAGNESIUM [Concomitant]
     Dates: start: 1997
  15. COLACE [Concomitant]
     Active Substance: DOCUSATE SODIUM
     Dates: start: 20161011
  16. PALBOCICLIB [Suspect]
     Active Substance: PALBOCICLIB
     Indication: BREAST CANCER
     Dosage: 125 MG, CYCLIC (28 DAY CYCLE)125.0MG EVERY CYCLE
     Route: 048
     Dates: start: 20160912, end: 20170227
  17. VITAMIN D [Concomitant]
     Active Substance: CHOLECALCIFEROL
     Dates: start: 1997
  18. CRESTOR [Concomitant]
     Active Substance: ROSUVASTATIN CALCIUM
     Dates: start: 2014
  19. VITAMIN B12 [Concomitant]
     Active Substance: CYANOCOBALAMIN
     Dates: start: 2011
  20. GARLIC. [Concomitant]
     Active Substance: GARLIC
     Dates: start: 1997

REACTIONS (2)
  - Hypoxia [Not Recovered/Not Resolved]
  - Dyspnoea [Not Recovered/Not Resolved]

NARRATIVE: CASE EVENT DATE: 20170227
